FAERS Safety Report 9227521 (Version 1)
Quarter: 2013Q1

REPORT INFORMATION
  Report Type: Spontaneous
  Country: US (occurrence: None)
  Receive Date: 20121004
  Receipt Date: 20121004
  Transmission Date: 20140127
  Serious: Yes (Death)
  Sender: FDA-Public Use
  Company Number: 1420468

PATIENT
  Age: 93 Year
  Sex: Female
  Weight: 61.36 kg

DRUGS (2)
  1. GEMCITABINE [Suspect]
     Indication: PLASMA CELL MYELOMA
     Dosage: 1640 MG, DAY 1 AND 8 INTRAVENOUS (NOT OTHERWISE SPECIFIED)?
     Route: 042
     Dates: start: 20120516, end: 20120702
  2. CARBOPLATIN [Suspect]
     Indication: PLASMA CELL MYELOMA
     Dosage: 450 MG, DAY 1 OF EACH CYCLE INTRAVENOUS( NOT OTHERWISE SPECIFIED)?
     Route: 042
     Dates: start: 20120530, end: 20120726

REACTIONS (1)
  - Disease progression [None]
